FAERS Safety Report 6427284-2 (Version None)
Quarter: 2009Q4

REPORT INFORMATION
  Report Type: 
  Country: None (occurrence: None)
  Receive Date: 20091104
  Receipt Date: 20091028
  Transmission Date: 20100525
  Serious: Yes (Hospitalization)
  Sender: FDA-Public Use
  Company Number: B0598735A

PATIENT
  Age: 77 Year
  Sex: Male

DRUGS (7)
  1. VALTREX [Suspect]
     Indication: HERPES ZOSTER
     Dosage: 1000MG TWICE PER DAY
     Route: 048
     Dates: start: 20091013, end: 20091015
  2. DIOVAN [Concomitant]
     Dosage: 40MG PER DAY
     Route: 048
     Dates: end: 20091015
  3. SIGMART [Concomitant]
     Dosage: 30MG PER DAY
     Route: 048
     Dates: end: 20091015
  4. ARTIST [Concomitant]
     Dosage: 20MG PER DAY
     Route: 048
     Dates: end: 20091015
  5. PANALDINE [Concomitant]
     Dosage: 100MG PER DAY
     Route: 048
     Dates: end: 20091015
  6. UNKNOWN DRUG [Concomitant]
     Dosage: 100MG PER DAY
     Route: 048
     Dates: end: 20091015
  7. THYRADIN S [Concomitant]
     Dosage: 75MG PER DAY
     Route: 048
     Dates: end: 20091015

REACTIONS (5)
  - DYSARTHRIA [None]
  - DYSPHAGIA [None]
  - GAIT DISTURBANCE [None]
  - RENAL FAILURE ACUTE [None]
  - TETANY [None]
